FAERS Safety Report 8864489 (Version 1)
Quarter: 2012Q4

REPORT INFORMATION
  Report Type: 
  Country: US (occurrence: US)
  Receive Date: 20121024
  Receipt Date: 20121024
  Transmission Date: 20130627
  Serious: No
  Sender: FDA-Public Use
  Company Number: US-AMGEN-USASP2011067883

PATIENT
  Age: 78 Year

DRUGS (8)
  1. ENBREL [Suspect]
     Indication: PRODUCT USED FOR UNKNOWN INDICATION
     Dosage: 50 mg, qwk
     Route: 058
  2. FUROSEMIDE [Concomitant]
     Dosage: 40 mg, UNK
  3. LIPITOR [Concomitant]
     Dosage: 10 mg, UNK
  4. NAPROXEN [Concomitant]
     Dosage: 250 mg, UNK
  5. ATENOLOL [Concomitant]
     Dosage: 50 mg, UNK
  6. OMEPRAZOLE [Concomitant]
     Dosage: 20 mg, UNK
  7. NIFEDIPINE [Concomitant]
     Dosage: 20 mg, UNK
  8. CHLORIDE [Concomitant]

REACTIONS (1)
  - Aspiration joint [Recovered/Resolved]
